FAERS Safety Report 6441547-6 (Version None)
Quarter: 2009Q4

REPORT INFORMATION
  Report Type: 
  Country: None (occurrence: None)
  Receive Date: 20091116
  Receipt Date: 20091106
  Transmission Date: 20100525
  Serious: Yes (Other)
  Sender: FDA-Public Use
  Company Number: GXKR2009IT12303

PATIENT
  Sex: Female

DRUGS (1)
  1. ALENDRONIC ACID (NGX) [Suspect]
     Route: 065

REACTIONS (1)
  - OSTEOMYELITIS [None]
